FAERS Safety Report 15681469 (Version 1)
Quarter: 2018Q4

REPORT INFORMATION
  Report Type: Spontaneous
  Country: DK (occurrence: DK)
  Receive Date: 20181203
  Receipt Date: 20181203
  Transmission Date: 20190205
  Serious: Yes (Death)
  Sender: FDA-Public Use
  Company Number: DK-PFIZER INC-2018495326

PATIENT
  Age: 67 Year
  Sex: Female
  Weight: 78 kg

DRUGS (21)
  1. GANGIDEN [Concomitant]
     Indication: CONSTIPATION
     Dosage: 2 DF, 1X/DAY
     Route: 048
     Dates: start: 20180803
  2. METADON DAK [Concomitant]
     Active Substance: METHADONE HYDROCHLORIDE
     Indication: PAIN
     Dosage: 20 MG, DAILY
     Route: 048
     Dates: start: 20180830
  3. LAXOBERAL [Concomitant]
     Active Substance: SODIUM PICOSULFATE
     Indication: CONSTIPATION
     Dosage: 10 DF, 1X/DAY
     Route: 048
     Dates: start: 20180820
  4. METOCLOPRAMIDE ORION [Concomitant]
     Indication: NAUSEA
     Dosage: 10 MG, 3X/DAY AND 1 TABLET AS NEEDED, MAX 1 DAILY
     Route: 048
     Dates: start: 20180731
  5. OXAPAX [Concomitant]
     Active Substance: OXAZEPAM
     Indication: ANXIETY
     Dosage: 7.5 MG, AS NEEDED
     Route: 048
     Dates: start: 20180928
  6. CAPECITABIN STADA [Suspect]
     Active Substance: CAPECITABINE
     Indication: BREAST CANCER METASTATIC
     Dosage: 3.25 TABLETS MORNING + 4 TABLETS EVENING
     Route: 048
     Dates: start: 20180807
  7. IMOCLONE [Concomitant]
     Active Substance: ZOPICLONE
     Indication: SLEEP DISORDER
     Dosage: 7.5 MG, AS NEEDED
     Route: 048
     Dates: start: 20180806
  8. AMITRIPTYLINEHYDROCHLORIDE [Concomitant]
     Indication: PAIN
     Dosage: 25 MG, 1X/DAY
     Route: 048
     Dates: start: 20180810
  9. DULCOLAX (BISACODYL) [Concomitant]
     Active Substance: BISACODYL
     Indication: CONSTIPATION
     Dosage: 10 MG, AS NEEDED
     Route: 054
     Dates: start: 20180917
  10. CORODIL [ENALAPRIL MALEATE] [Concomitant]
     Indication: HYPERTENSION
     Dosage: 20 MG, 1X/DAY
     Route: 048
     Dates: start: 201801
  11. SUMATRIPTAN AUROBINDO [Concomitant]
     Indication: MIGRAINE
     Dosage: 100 MG, AS NEEDED
     Route: 048
     Dates: start: 201707
  12. UNIKALK SILVER [Concomitant]
     Indication: MINERAL SUPPLEMENTATION
     Dosage: 1 DF, 1X/DAY
     Route: 048
     Dates: start: 20180917
  13. PANTOPRAZOL ACTAVIS [Concomitant]
     Active Substance: PANTOPRAZOLE SODIUM
     Indication: OESOPHAGITIS
     Dosage: 40 MG, 1X/DAY
     Route: 048
     Dates: start: 2014
  14. TOILAX [Concomitant]
     Active Substance: BISACODYL
     Indication: CONSTIPATION
     Dosage: 1 DF, AS NEEDED
     Route: 054
     Dates: start: 20180917
  15. ALMINOX [ALUMINIUM HYDROXIDE-MAGNESIUM CARBONATE GEL;MAGNESIUM OXIDE] [Concomitant]
     Indication: DYSPEPSIA
     Dosage: 1 DF, AS NEEDED
     Route: 048
     Dates: start: 20180917
  16. PANODIL [Concomitant]
     Active Substance: ACETAMINOPHEN
     Indication: PAIN
     Dosage: 4000 MG, 1X/DAY
     Route: 048
     Dates: start: 20180903
  17. MALFIN [Concomitant]
     Active Substance: MORPHINE SULFATE
     Indication: PAIN
     Dosage: 160 MG, 1X/DAY
     Route: 048
     Dates: start: 20180820
  18. NORITREN [Concomitant]
     Active Substance: NORTRIPTYLINE HYDROCHLORIDE
     Indication: PAIN
     Dosage: 50 MG, 1X/DAY
     Route: 048
     Dates: start: 20180907
  19. ZOLEDRONIC ACID [Suspect]
     Active Substance: ZOLEDRONIC ACID
     Indication: METASTASES TO BONE
     Dosage: 4 MG, EVERY 3 WEEKS
     Route: 042
     Dates: start: 20180807
  20. MORFIN DAK [Concomitant]
     Active Substance: MORPHINE HYDROCHLORIDE
     Indication: PAIN
     Dosage: 1 DF, AS NEEDED
     Route: 048
     Dates: start: 20180917
  21. PREDNISOLON ^DLF^ [Concomitant]
     Active Substance: PREDNISOLONE
     Indication: SUPPLEMENTATION THERAPY
     Dates: start: 20180920

REACTIONS (5)
  - Pulmonary fibrosis [Fatal]
  - Pyrexia [Recovered/Resolved]
  - Respiratory failure [Fatal]
  - Pneumonitis [Fatal]
  - Oxygen saturation decreased [Fatal]

NARRATIVE: CASE EVENT DATE: 20181012
